FAERS Safety Report 8859517 (Version 1)
Quarter: 2012Q4

REPORT INFORMATION
  Report Type: 
  Country: SI (occurrence: SI)
  Receive Date: 20121024
  Receipt Date: 20121024
  Transmission Date: 20130627
  Serious: Yes (Death, Other)
  Sender: FDA-Public Use
  Company Number: SI-ROCHE-664710

PATIENT

DRUGS (4)
  1. CAPECITABINE [Suspect]
     Indication: RECTAL CANCER
     Route: 065
  2. CAPECITABINE [Suspect]
     Route: 065
  3. CETUXIMAB [Suspect]
     Indication: RECTAL CANCER
     Dosage: AT WEEK THREE
     Route: 042
  4. CETUXIMAB [Suspect]
     Route: 042

REACTIONS (17)
  - Sepsis [Fatal]
  - Hypersensitivity [Unknown]
  - Hepatotoxicity [Unknown]
  - Diarrhoea [Unknown]
  - Dermatitis [Unknown]
  - Infection [Unknown]
  - Decreased appetite [Unknown]
  - Myocardial ischaemia [Unknown]
  - Leukopenia [Unknown]
  - Anastomotic leak [Unknown]
  - Abdominal abscess [Unknown]
  - Gastrointestinal necrosis [Unknown]
  - Large intestine perforation [Unknown]
  - Impaired healing [Unknown]
  - Cystitis [Unknown]
  - Procedural complication [Unknown]
  - Bronchopneumonia [Unknown]
